FAERS Safety Report 7809237-2 (Version None)
Quarter: 2011Q4

REPORT INFORMATION
  Report Type: 
  Country: None (occurrence: None)
  Receive Date: 20111012
  Receipt Date: 20110929
  Transmission Date: 20120403
  Serious: Yes (Hospitalization)
  Sender: FDA-Public Use
  Company Number: JP-UCBSA-035422

PATIENT
  Age: 64 Year
  Sex: Female

DRUGS (11)
  1. CERTOLIZUMAB PEGOL [Suspect]
     Dosage: UNKNOWN DOSE
     Route: 058
     Dates: start: 20090710, end: 20091016
  2. CLARITHROMYCIN [Concomitant]
     Dosage: DAILY DOSE:200MG
     Dates: start: 20090612
  3. ROSUVASTATIN CALCIUM [Concomitant]
     Dosage: DAILY DOSE: 5MG
     Dates: start: 20081017
  4. LOSARTAN POTASSIUM [Concomitant]
     Dosage: DAILY DOSE: 25MG
     Dates: start: 20090612
  5. AMBROXOL HYDROCHLORIDE [Concomitant]
     Dosage: DAILY DOSE :45MG
     Dates: start: 20090904
  6. CERTOLIZUMAB PEGOL [Suspect]
     Indication: RHEUMATOID ARTHRITIS
     Route: 058
     Dates: start: 20091030
  7. KETOTIFEN FUMARATE [Concomitant]
     Dosage: ADEQUATE DOSE
     Dates: start: 20110304
  8. LOSARTAN POTASSIUM/HYDROCHLOROTHIAZIDE [Concomitant]
     Dosage: 1 TAB DAILY
     Dates: start: 20090313
  9. SULFASALAZINE [Concomitant]
     Dosage: DAILY DOSE:1000MG
     Dates: start: 20080722
  10. KETOPROFEN [Concomitant]
     Dosage: ADEQUATE DOSE
     Dates: start: 20081001
  11. DIPYRIDAMOLE [Concomitant]
     Dosage: DAILY DOSE: 300MG
     Dates: start: 20100806

REACTIONS (2)
  - ARTHRALGIA [None]
  - PNEUMONIA [None]
